FAERS Safety Report 4503066-3 (Version None)
Quarter: 2004Q4

REPORT INFORMATION
  Report Type: 
  Country: None (occurrence: None)
  Receive Date: 20041116
  Receipt Date: 20041116
  Transmission Date: 20050328
  Serious: Yes (Other)
  Sender: FDA-Public Use
  Company Number: None

PATIENT
  Age: 21 Year
  Sex: Female
  Weight: 97.977 kg

DRUGS (4)
  1. RISPERDAL [Suspect]
     Indication: BORDERLINE PERSONALITY DISORDER
     Dosage: 0.5 MG BEDTIME ORAL
     Route: 048
     Dates: start: 20030708, end: 20030712
  2. EFFEXOR XR [Concomitant]
  3. LUVOX [Concomitant]
  4. TRILEPTAL [Concomitant]

REACTIONS (3)
  - ASTHENIA [None]
  - HYPOAESTHESIA [None]
  - TREATMENT NONCOMPLIANCE [None]
